FAERS Safety Report 5412347-0 (Version None)
Quarter: 2007Q3

REPORT INFORMATION
  Report Type: 
  Country: None (occurrence: None)
  Receive Date: 20070809
  Receipt Date: 20070727
  Transmission Date: 20080115
  Serious: Yes (Other)
  Sender: FDA-Public Use
  Company Number: 440017M07USA

PATIENT
  Age: 52 Year
  Sex: Male
  Weight: 71.6683 kg

DRUGS (25)
  1. SEROSTIM [Suspect]
     Indication: CACHEXIA
     Dosage: 6 MG, 1 IN 1 DAYS, SUBCUTANEOUS;  3 MG, 1 IN 1 DAYS, SUBCUTANEOUS
     Route: 058
     Dates: start: 20070417, end: 20070625
  2. SEROSTIM [Suspect]
  3. ANIMI-3 (MULTIVITAMIN AND MINERAL SUPPLEMENT) [Concomitant]
  4. CRESTOR [Concomitant]
  5. LOMOTIL [Concomitant]
  6. FOSAMAX+D (ALENDRONATE SODIUM) [Concomitant]
  7. LAMICTAL [Concomitant]
  8. LEXAPRO [Concomitant]
  9. MAG-OX (MAGNESIUM OXIDE) [Concomitant]
  10. MARINOL [Concomitant]
  11. NAMENDA [Concomitant]
  12. NORVIR [Concomitant]
  13. PLAVIX [Concomitant]
  14. PREVACID [Concomitant]
  15. PREZISTA (ALL OTHER THERAPEUTIC PRODUCTS) [Concomitant]
  16. RALTEGRAVIR (ALL OTHER THERAPEUTIC PRODUCTS) [Concomitant]
  17. RAZADYNE ER (ALL OTHER THERAPEUTIC PRODUCTS) [Concomitant]
  18. SYNTHROID [Concomitant]
  19. TOPROL-XL [Concomitant]
  20. MAXZIDE [Concomitant]
  21. TRILEPTAL [Concomitant]
  22. TRUVADA (ALL OTHER THERAPEUTIC PRODUCTS) [Concomitant]
  23. VIAGRA [Concomitant]
  24. WELCHOL [Concomitant]
  25. WELLBUTRIN XL [Concomitant]

REACTIONS (1)
  - PANCREATITIS [None]
